FAERS Safety Report 12890683 (Version 1)
Quarter: 2016Q4

REPORT INFORMATION
  Report Type: Spontaneous
  Country: US (occurrence: US)
  Receive Date: 20161027
  Receipt Date: 20161027
  Transmission Date: 20170207
  Serious: No
  Sender: FDA-Public Use
  Company Number: US-JAZZ-2016-US-015894

PATIENT
  Sex: Female

DRUGS (30)
  1. XYREM [Suspect]
     Active Substance: SODIUM OXYBATE
     Dosage: 4.5 G, BID
     Route: 048
     Dates: start: 201104
  2. LYRICA [Concomitant]
     Active Substance: PREGABALIN
  3. MIRALAX [Concomitant]
     Active Substance: POLYETHYLENE GLYCOL 3350
  4. NALTREXONE [Concomitant]
     Active Substance: NALTREXONE
  5. ANUCORT-HC [Concomitant]
     Active Substance: HYDROCORTISONE ACETATE
  6. PROBIOTICA [Concomitant]
     Active Substance: PROBIOTICS NOS
  7. XOPENEX [Concomitant]
     Active Substance: LEVALBUTEROL HYDROCHLORIDE
  8. ASPIRIN ADULT [Concomitant]
  9. DOXEPIN [Concomitant]
     Active Substance: DOXEPIN
  10. ESTRACE [Concomitant]
     Active Substance: ESTRADIOL
  11. HYDROXOCOBALAMIN [Concomitant]
     Active Substance: HYDROXOCOBALAMIN
  12. LIDODERM [Concomitant]
     Active Substance: LIDOCAINE
  13. XYREM [Suspect]
     Active Substance: SODIUM OXYBATE
     Dosage: 3 G, BID
     Route: 048
     Dates: start: 200809, end: 201104
  14. SINGULAIR [Concomitant]
     Active Substance: MONTELUKAST SODIUM
  15. BACLOFEN. [Concomitant]
     Active Substance: BACLOFEN
  16. LEVOFLOXACIN. [Concomitant]
     Active Substance: LEVOFLOXACIN
  17. XYREM [Suspect]
     Active Substance: SODIUM OXYBATE
     Indication: SLEEP DISORDER
     Dosage: 2.25 G, BID
     Route: 048
     Dates: start: 200807, end: 200809
  18. KLONOPIN [Concomitant]
     Active Substance: CLONAZEPAM
  19. CIPRO [Concomitant]
     Active Substance: CIPROFLOXACIN HYDROCHLORIDE
  20. FLEXERIL [Concomitant]
     Active Substance: CYCLOBENZAPRINE HYDROCHLORIDE
  21. TUDORZA PRESSAIR [Concomitant]
     Active Substance: ACLIDINIUM BROMIDE
  22. XOPENEX HFA [Concomitant]
     Active Substance: LEVALBUTEROL TARTRATE
  23. LEVOTHYROXINE. [Concomitant]
     Active Substance: LEVOTHYROXINE
  24. PROPRANOLOL [Concomitant]
     Active Substance: PROPRANOLOL\PROPRANOLOL HYDROCHLORIDE
  25. BIOSIL [Concomitant]
  26. CYMBALTA [Concomitant]
     Active Substance: DULOXETINE HYDROCHLORIDE
  27. GABAPENTIN. [Concomitant]
     Active Substance: GABAPENTIN
  28. SPIRIVA [Concomitant]
     Active Substance: TIOTROPIUM BROMIDE MONOHYDRATE
  29. TYLENOL EXTRA STRENGTH [Concomitant]
     Active Substance: ACETAMINOPHEN
  30. KAPIDEX [Concomitant]
     Active Substance: DEXLANSOPRAZOLE

REACTIONS (2)
  - Feeling abnormal [Unknown]
  - Oropharyngeal pain [Unknown]
